FAERS Safety Report 6555017-8 (Version None)
Quarter: 2010Q1

REPORT INFORMATION
  Report Type: 
  Country: None (occurrence: None)
  Receive Date: 20100126
  Receipt Date: 20100126
  Transmission Date: 20100710
  Serious: Yes (Other)
  Sender: FDA-Public Use
  Company Number: None

PATIENT
  Sex: Male
  Weight: 73.6 kg

DRUGS (1)
  1. GABAPENTIN [Suspect]
     Indication: MUSCLE INJURY
     Dosage: 2 CAPSULES DAY FOR 30DYS8/09 ORAL
     Route: 048
     Dates: start: 20081001, end: 20090801

REACTIONS (2)
  - DRUG INEFFECTIVE [None]
  - PRODUCT SUBSTITUTION ISSUE [None]
